FAERS Safety Report 20149541 (Version 1)
Quarter: 2021Q4

REPORT INFORMATION
  Report Type: Spontaneous
  Country: RU (occurrence: RU)
  Receive Date: 20211205
  Receipt Date: 20211205
  Transmission Date: 20220303
  Serious: Yes (Other)
  Sender: FDA-Public Use
  Company Number: RU-ABBVIE-21K-251-4180322-00

PATIENT
  Sex: Female
  Weight: 6 kg

DRUGS (1)
  1. VALPROATE SODIUM [Suspect]
     Active Substance: VALPROATE SODIUM
     Indication: Epileptic encephalopathy
     Route: 048
     Dates: start: 20190609, end: 20190630

REACTIONS (3)
  - Blood lactic acid increased [Recovering/Resolving]
  - Epilepsy [Recovering/Resolving]
  - Drug ineffective [Unknown]
